FAERS Safety Report 6212753-0 (Version None)
Quarter: 2009Q2

REPORT INFORMATION
  Report Type: 
  Country: None (occurrence: None)
  Receive Date: 20090603
  Receipt Date: 20090528
  Transmission Date: 20091009
  Serious: Yes (Other)
  Sender: FDA-Public Use
  Company Number: GB-BRISTOL-MYERS SQUIBB COMPANY-14640296

PATIENT
  Age: 38 Year
  Sex: Female

DRUGS (7)
  1. PARACETAMOL [Suspect]
  2. CODEINE PHOSPHATE [Suspect]
  3. CHOLESTYRAMINE [Suspect]
     Dosage: CHOLESTYRAMINE WASHOUT
  4. ARAVA [Suspect]
     Indication: RHEUMATOID ARTHRITIS
     Dosage: PREVIOUSLY RECEIVED OVER 02-OCT-2003 TO 30-JAN-2004; DISCONTINUED AT 6-7 WEEKS OF PREGNANCY
     Route: 048
     Dates: start: 20040610, end: 20081215
  5. NAPROXEN [Suspect]
  6. AMITRIPTLINE HYDROCHLORIDE TAB [Suspect]
  7. LANSOPRAZOLE [Suspect]

REACTIONS (2)
  - ABORTION SPONTANEOUS [None]
  - PREGNANCY [None]
